FAERS Safety Report 7603566-3 (Version None)
Quarter: 2011Q3

REPORT INFORMATION
  Report Type: 
  Country: None (occurrence: None)
  Receive Date: 20110712
  Receipt Date: 20110701
  Transmission Date: 20111222
  Serious: No
  Sender: FDA-Public Use
  Company Number: US-PFIZER INC-2011090283

PATIENT
  Sex: Female
  Weight: 67.12 kg

DRUGS (1)
  1. LATANOPROST [Suspect]
     Indication: GLAUCOMA
     Dosage: ONE DROP IN EACH EYE, ONCE A DAY
     Route: 047
     Dates: start: 20110424, end: 20110424

REACTIONS (2)
  - EYELIDS PRURITUS [None]
  - DRUG INEFFECTIVE [None]
